FAERS Safety Report 21700272 (Version 2)
Quarter: 2024Q3

REPORT INFORMATION
  Report Type: Spontaneous
  Country: US (occurrence: US)
  Receive Date: 20221208
  Receipt Date: 20240919
  Transmission Date: 20241017
  Serious: Yes (Hospitalization)
  Sender: SANOFI AVENTIS
  Company Number: US-SA-SAC20221207000815

PATIENT
  Age: 74 Year
  Sex: Female

DRUGS (1)
  1. DUPIXENT [Suspect]
     Active Substance: DUPILUMAB
     Indication: Nasal polyps
     Dosage: 300 MG, QOW
     Route: 058

REACTIONS (3)
  - Bronchitis [Unknown]
  - Sinusitis [Unknown]
  - Injection site pain [Unknown]
